FAERS Safety Report 16739965 (Version 1)
Quarter: 2019Q3

REPORT INFORMATION
  Report Type: Report from Study
  Country: None (occurrence: CA)
  Receive Date: 20190826
  Receipt Date: 20190826
  Transmission Date: 20191005
  Serious: Yes (Other)
  Sender: FDA-Public Use
  Company Number: CA-ABBVIE-18K-028-2529143-00

PATIENT
  Sex: Female
  Weight: 94.43 kg

DRUGS (1)
  1. HUMIRA [Suspect]
     Active Substance: ADALIMUMAB
     Indication: ANKYLOSING SPONDYLITIS
     Route: 058
     Dates: start: 20180109

REACTIONS (6)
  - Inflammation [Not Recovered/Not Resolved]
  - Exposure during pregnancy [Unknown]
  - Walking aid user [Not Recovered/Not Resolved]
  - Breech presentation [Unknown]
  - Normal newborn [Unknown]
  - Pelvic inflammatory disease [Not Recovered/Not Resolved]

NARRATIVE: CASE EVENT DATE: 2018
